FAERS Safety Report 24328884 (Version 4)
Quarter: 2025Q3

REPORT INFORMATION
  Report Type: Spontaneous
  Country: JP (occurrence: JP)
  Receive Date: 20240917
  Receipt Date: 20250923
  Transmission Date: 20251020
  Serious: Yes (Hospitalization, Other)
  Sender: ALEXION PHARMACEUTICALS
  Company Number: None

PATIENT
  Age: 57 Year
  Sex: Male
  Weight: 44.7 kg

DRUGS (30)
  1. IMFINZI [Suspect]
     Active Substance: DURVALUMAB
     Indication: Non-small cell lung cancer
     Dosage: 1500 MILLIGRAM, QD
  2. IMFINZI [Suspect]
     Active Substance: DURVALUMAB
     Route: 065
     Dates: start: 20240530, end: 20240627
  3. IMJUDO [Suspect]
     Active Substance: TREMELIMUMAB\TREMELIMUMAB-ACTL
     Indication: Non-small cell lung cancer
     Dosage: 750 MILLIGRAM, QD
  4. IMJUDO [Suspect]
     Active Substance: TREMELIMUMAB\TREMELIMUMAB-ACTL
     Route: 065
     Dates: start: 20240530, end: 20240627
  5. CARBOPLATIN [Concomitant]
     Active Substance: CARBOPLATIN
  6. CARBOPLATIN [Concomitant]
     Active Substance: CARBOPLATIN
     Route: 065
  7. ABRAXANE [Concomitant]
     Active Substance: PACLITAXEL
  8. ABRAXANE [Concomitant]
     Active Substance: PACLITAXEL
     Route: 065
  9. DECADRON [Concomitant]
     Active Substance: DEXAMETHASONE
     Route: 065
  10. PALONOSETRON [Concomitant]
     Active Substance: PALONOSETRON
  11. PALONOSETRON [Concomitant]
     Active Substance: PALONOSETRON
  12. DENOSUMAB [Concomitant]
     Active Substance: DENOSUMAB
  13. DENOSUMAB [Concomitant]
     Active Substance: DENOSUMAB
  14. APREPITANT [Concomitant]
     Active Substance: APREPITANT
     Route: 065
  15. APREPITANT [Concomitant]
     Active Substance: APREPITANT
  16. PREGABALIN [Concomitant]
     Active Substance: PREGABALIN
     Route: 065
  17. PREGABALIN [Concomitant]
     Active Substance: PREGABALIN
  18. SYMPROIC [Concomitant]
     Active Substance: NALDEMEDINE TOSYLATE
     Route: 065
  19. SYMPROIC [Concomitant]
     Active Substance: NALDEMEDINE TOSYLATE
  20. VONOPRAZAN FUMARATE [Concomitant]
     Active Substance: VONOPRAZAN FUMARATE
     Route: 065
  21. VONOPRAZAN FUMARATE [Concomitant]
     Active Substance: VONOPRAZAN FUMARATE
  22. CALCIUM CARBONATE\CHOLECALCIFEROL\MAGNESIUM CARBONATE [Concomitant]
     Active Substance: CALCIUM CARBONATE\CHOLECALCIFEROL\MAGNESIUM CARBONATE
     Route: 065
  23. CELECOXIB [Concomitant]
     Active Substance: CELECOXIB
     Route: 065
  24. CELECOXIB [Concomitant]
     Active Substance: CELECOXIB
  25. OXYCODONE [Concomitant]
     Active Substance: OXYCODONE
     Route: 065
  26. OXYCODONE [Concomitant]
     Active Substance: OXYCODONE
  27. CALONAL [Concomitant]
     Active Substance: ACETAMINOPHEN
     Route: 065
  28. CALONAL [Concomitant]
     Active Substance: ACETAMINOPHEN
  29. DECADRON [Concomitant]
     Active Substance: DEXAMETHASONE
  30. CALCIUM CARBONATE\CHOLECALCIFEROL\MAGNESIUM CARBONATE [Concomitant]
     Active Substance: CALCIUM CARBONATE\CHOLECALCIFEROL\MAGNESIUM CARBONATE

REACTIONS (4)
  - Cytokine release syndrome [Recovered/Resolved]
  - Hepatic function abnormal [Unknown]
  - Immune-mediated pancreatitis [Unknown]
  - Immune-mediated enterocolitis [Recovered/Resolved]

NARRATIVE: CASE EVENT DATE: 20240724
